FAERS Safety Report 20379393 (Version 1)
Quarter: 2022Q1

REPORT INFORMATION
  Report Type: Spontaneous
  Country: CN (occurrence: None)
  Receive Date: 20220126
  Receipt Date: 20220126
  Transmission Date: 20220423
  Serious: Yes (Other)
  Sender: FDA-Public Use
  Company Number: 2022A035768

PATIENT
  Age: 76 Year
  Sex: Male
  Weight: 66 kg

DRUGS (2)
  1. BUDESONIDE [Suspect]
     Active Substance: BUDESONIDE
     Indication: Bronchitis chronic
     Route: 055
     Dates: start: 20211211, end: 20211211
  2. SODIUM CHLORIDE [Concomitant]
     Active Substance: SODIUM CHLORIDE
     Indication: Bronchitis chronic
     Route: 065
     Dates: start: 20211211, end: 20211211

REACTIONS (2)
  - Wheezing [Recovering/Resolving]
  - Asphyxia [Recovering/Resolving]

NARRATIVE: CASE EVENT DATE: 20211211
